FAERS Safety Report 8859717 (Version 1)
Quarter: 2012Q4

REPORT INFORMATION
  Report Type: 
  Country: US (occurrence: US)
  Receive Date: 20121025
  Receipt Date: 20121025
  Transmission Date: 20130627
  Serious: No
  Sender: FDA-Public Use
  Company Number: US-ABBOTT-12P-163-0896805-00

PATIENT
  Age: 25 Year
  Sex: Female
  Weight: 65.83 kg

DRUGS (15)
  1. LUPRON DEPOT 3.75 MG [Suspect]
     Indication: MIGRAINE
     Dates: start: 20111227
  2. CYMBALTA [Concomitant]
     Indication: DEPRESSION
  3. ROZEREM [Concomitant]
     Indication: INSOMNIA
  4. TOPAMAX [Concomitant]
     Indication: MIGRAINE
  5. XANAX [Concomitant]
     Indication: ANXIETY
  6. VALIUM [Concomitant]
     Indication: INSOMNIA
  7. ASPIRIN [Concomitant]
     Indication: ANTICOAGULANT THERAPY
  8. NORCO [Concomitant]
     Indication: MIGRAINE
  9. SUMAVEL [Concomitant]
     Indication: MIGRAINE
  10. TORADOL [Concomitant]
     Indication: MIGRAINE
  11. BENEDRYL [Concomitant]
     Indication: INSOMNIA
  12. LAMOTRIGINE [Concomitant]
     Indication: SLEEP DISORDER
  13. ZOFRAN [Concomitant]
     Indication: NAUSEA
  14. IMITRIX [Concomitant]
     Indication: MIGRAINE
  15. UNKNOWN BIRTH CONTROL MEDICATION [Concomitant]
     Indication: PRODUCT USED FOR UNKNOWN INDICATION
     Dates: start: 20120101, end: 20120106

REACTIONS (7)
  - Menstruation normal [Recovered/Resolved]
  - Dysmenorrhoea [Recovered/Resolved]
  - Vomiting [Recovered/Resolved]
  - Migraine [Not Recovered/Not Resolved]
  - Off label use [Not Recovered/Not Resolved]
  - Migraine [Not Recovered/Not Resolved]
  - Migraine [Not Recovered/Not Resolved]
